FAERS Safety Report 7582928-7 (Version None)
Quarter: 2011Q2

REPORT INFORMATION
  Report Type: 
  Country: None (occurrence: None)
  Receive Date: 20110527
  Receipt Date: 20101102
  Transmission Date: 20111010
  Serious: Yes (Hospitalization)
  Sender: FDA-Public Use
  Company Number: US201010001275

PATIENT
  Age: 58 Year
  Sex: Male
  Weight: 148.3 kg

DRUGS (13)
  1. BYETTA [Suspect]
     Indication: TYPE 2 DIABETES MELLITUS
     Dosage: 5 UG,
     Dates: start: 20100902, end: 20100914
  2. DIGOXIN [Concomitant]
  3. OXYGEN (OXYGEN) [Concomitant]
  4. ALLOPURINOL [Concomitant]
  5. WARFARIN SODIUM [Concomitant]
  6. CHLORTHALIDONE [Concomitant]
  7. ASPIRIN [Concomitant]
  8. PROVENTIL HFA (SALBUTAMOL) [Concomitant]
  9. SIMVASTATIN [Concomitant]
  10. LISINOPRIL [Concomitant]
  11. GLUCOTROL XL [Concomitant]
  12. METOPROLOL TARTRATE [Concomitant]
  13. CARDIZEM CD [Concomitant]

REACTIONS (2)
  - WEIGHT DECREASED [None]
  - PANCREATITIS ACUTE [None]
